FAERS Safety Report 21637361 (Version 3)
Quarter: 2022Q4

REPORT INFORMATION
  Report Type: Spontaneous
  Country: US (occurrence: US)
  Receive Date: 20221124
  Receipt Date: 20221206
  Transmission Date: 20230113
  Serious: No
  Sender: FDA-Public Use
  Company Number: US-LEO Pharma-346980

PATIENT
  Age: 92 Year
  Sex: Male

DRUGS (2)
  1. CALCIPOTRIENE [Suspect]
     Active Substance: CALCIPOTRIENE
     Indication: Pruritus
     Dosage: UNKNOWN
     Dates: start: 20221110, end: 20221110
  2. CALCIPOTRIENE [Suspect]
     Active Substance: CALCIPOTRIENE
     Indication: Pruritus
     Dosage: UNKNOWN
     Dates: start: 20221110, end: 20221110

REACTIONS (7)
  - Rash [Recovering/Resolving]
  - Erythema [Recovering/Resolving]
  - Wound secretion [Recovering/Resolving]
  - Dermatitis contact [Recovering/Resolving]
  - Peripheral swelling [Recovering/Resolving]
  - Pruritus [Recovering/Resolving]
  - Product use in unapproved indication [Unknown]

NARRATIVE: CASE EVENT DATE: 20221110
